FAERS Safety Report 4384505-8 (Version None)
Quarter: 2004Q2

REPORT INFORMATION
  Report Type: 
  Country: None (occurrence: None)
  Receive Date: 20040610
  Receipt Date: 20040413
  Transmission Date: 20050107
  Serious: Yes (Hospitalization)
  Sender: FDA-Public Use
  Company Number: F03200400036

PATIENT
  Age: 73 Year
  Sex: Male

DRUGS (11)
  1. ELOXATIN [Suspect]
     Indication: BILE DUCT CANCER
     Dosage: 190 MG OTHER - INTRAVENEOUS NOS
     Route: 042
     Dates: start: 20040324, end: 20040324
  2. XELODA [Suspect]
     Indication: BILE DUCT CANCER
     Dosage: ^DIVIDED DOSES 2000 MG/DAY^ - ORAL
     Route: 048
  3. SIMVASTATIN [Concomitant]
  4. PANTOPRAZOLE SODIUM [Concomitant]
  5. ASPIRIN [Concomitant]
  6. LOPERAMIDE HYDROCHLORIDE [Concomitant]
  7. DICYCLOMINE HYDROCHLORIDE [Concomitant]
  8. ONDANSETRON [Concomitant]
  9. LORAZEPAM [Concomitant]
  10. DIPHENHYDRAMINE HCL [Concomitant]
  11. HALOPERIDOL [Concomitant]

REACTIONS (2)
  - CHILLS [None]
  - PYREXIA [None]
